FAERS Safety Report 9199312 (Version 1)
Quarter: 2013Q1

REPORT INFORMATION
  Report Type: Spontaneous
  Country: US (occurrence: None)
  Receive Date: 20130325
  Receipt Date: 20130325
  Transmission Date: 20140127
  Serious: Yes (Hospitalization)
  Sender: FDA-Public Use
  Company Number: 2013US-004599

PATIENT
  Age: 72 Year
  Sex: Female

DRUGS (9)
  1. OMONTYS (PEGINESATIDE) SOLUTION FOR INJECTION [Suspect]
     Indication: NEPHROGENIC ANAEMIA
     Route: 042
     Dates: start: 20130212, end: 20130212
  2. FLEXERIL (CYCLOBENZAPRINE HYDROCHLORIDE) [Concomitant]
  3. CALCIUM (CALCIUM) [Concomitant]
  4. SERTRALINE (SERTRALINE) (SERTRALINE) [Concomitant]
  5. ASPIRIN (ACETYLSALICYLIC ACID) [Concomitant]
  6. SIMVASTATIN (SIMVASTATIN) [Concomitant]
  7. VENOFER [Concomitant]
  8. HEPARIN (HEPARIN) [Concomitant]
  9. EPOGEN (EPOETIN ALFA) [Concomitant]

REACTIONS (1)
  - Vascular graft thrombosis [None]
